FAERS Safety Report 23526288 (Version 1)
Quarter: 2024Q1

REPORT INFORMATION
  Report Type: Spontaneous
  Country: JP (occurrence: JP)
  Receive Date: 20240215
  Receipt Date: 20240215
  Transmission Date: 20240409
  Serious: Yes (Hospitalization, Other)
  Sender: FDA-Public Use
  Company Number: JP-HEXAL-SDZ2023JP055255AA

PATIENT
  Sex: Male

DRUGS (1)
  1. TELMISARTAN [Suspect]
     Active Substance: TELMISARTAN
     Indication: Hypokalaemia
     Dosage: 20 MG
     Route: 048

REACTIONS (2)
  - Inappropriate antidiuretic hormone secretion [Recovering/Resolving]
  - Off label use [Unknown]
